FAERS Safety Report 4933174-4 (Version None)
Quarter: 2006Q1

REPORT INFORMATION
  Report Type: 
  Country: None (occurrence: None)
  Receive Date: 20060306
  Receipt Date: 20050309
  Transmission Date: 20060701
  Serious: Yes (Hospitalization)
  Sender: FDA-Public Use
  Company Number: US-MERCK-0503USA01915

PATIENT
  Age: 43 Year
  Sex: Male
  Weight: 100 kg

DRUGS (14)
  1. VIOXX [Suspect]
     Indication: BACK PAIN
     Route: 048
     Dates: start: 19991112, end: 20030701
  2. METHADONE HYDROCHLORIDE [Concomitant]
     Route: 065
     Dates: start: 19990101, end: 20010101
  3. OXYCODONE [Concomitant]
     Route: 065
     Dates: start: 19990101, end: 20010101
  4. OXYCONTIN [Concomitant]
     Route: 065
     Dates: start: 20010101, end: 20040101
  5. VERAPAMIL HYDROCHLORIDE [Concomitant]
     Route: 065
     Dates: start: 19980101, end: 20040801
  6. VERAPAMIL HYDROCHLORIDE [Concomitant]
     Route: 065
     Dates: start: 19980101, end: 20040801
  7. FLEXERIL [Concomitant]
     Route: 048
     Dates: start: 20020101
  8. EFFEXOR XR [Concomitant]
     Route: 065
  9. MAXALT [Concomitant]
     Route: 065
  10. NEXIUM [Concomitant]
     Route: 065
  11. PREVACID [Concomitant]
     Route: 065
  12. ZOLOFT [Concomitant]
     Route: 065
  13. AMITRIPTYLINE HYDROCHLORIDE [Concomitant]
     Route: 065
  14. KEFLEX [Concomitant]
     Route: 065

REACTIONS (8)
  - ARTHRITIS [None]
  - DRESSLER'S SYNDROME [None]
  - FAILURE OF IMPLANT [None]
  - HAND FRACTURE [None]
  - HYPERCHOLESTEROLAEMIA [None]
  - LEFT VENTRICULAR FAILURE [None]
  - MYOCARDIAL INFARCTION [None]
  - PNEUMONIA [None]
